FAERS Safety Report 10153428 (Version 1)
Quarter: 2014Q2

REPORT INFORMATION
  Report Type: Spontaneous
  Country: US (occurrence: US)
  Receive Date: 20140505
  Receipt Date: 20140505
  Transmission Date: 20141212
  Serious: No
  Sender: FDA-Public Use
  Company Number: US-ASTRAZENECA-2013SE91521

PATIENT
  Age: 65 Year
  Sex: Male

DRUGS (4)
  1. PRILOSEC [Suspect]
     Indication: GASTROOESOPHAGEAL REFLUX DISEASE
     Route: 048
     Dates: start: 20131121
  2. PRILOSEC [Suspect]
     Indication: GASTROOESOPHAGEAL REFLUX DISEASE
     Route: 048
  3. DOXYCYCLINE [Concomitant]
     Indication: ORAL BACTERIAL INFECTION
     Route: 048
     Dates: start: 2010
  4. AVODART [Concomitant]
     Indication: PROSTATE INFECTION
     Route: 048
     Dates: start: 201307

REACTIONS (2)
  - Ocular discomfort [Unknown]
  - Nausea [Not Recovered/Not Resolved]
